FAERS Safety Report 24531920 (Version 1)
Quarter: 2024Q4

REPORT INFORMATION
  Report Type: Spontaneous
  Country: SY (occurrence: None)
  Receive Date: 20241022
  Receipt Date: 20241022
  Transmission Date: 20250114
  Serious: Yes (Other)
  Sender: Alvotech
  Company Number: SY-ALVOTECHPMS-2024-ALVOTECHPMS-002455

PATIENT
  Age: 36 Year
  Sex: Male

DRUGS (3)
  1. ADALIMUMAB [Suspect]
     Active Substance: ADALIMUMAB
     Indication: PASH syndrome
     Dosage: 160 MG/WEEK IN THE 0 WEEK
  2. ADALIMUMAB [Suspect]
     Active Substance: ADALIMUMAB
     Indication: PASH syndrome
     Dosage: 80 MG/WEEK IN WEEKS 1 AND 2
  3. ADALIMUMAB [Suspect]
     Active Substance: ADALIMUMAB
     Indication: PASH syndrome
     Dosage: 40 MG/WEEK EVERY OTHER WEEK

REACTIONS (1)
  - Therapy partial responder [Unknown]
